FAERS Safety Report 5835112-9 (Version None)
Quarter: 2008Q3

REPORT INFORMATION
  Report Type: 
  Country: None (occurrence: None)
  Receive Date: 20080804
  Receipt Date: 20080725
  Transmission Date: 20090109
  Serious: Yes (Death)
  Sender: FDA-Public Use
  Company Number: 2008JP003278

PATIENT
  Age: 71 Year
  Sex: Female
  Weight: 42 kg

DRUGS (15)
  1. PROGRAF [Suspect]
     Indication: RHEUMATOID ARTHRITIS
     Dosage: 1 MG, UID/QD, ORAL
     Route: 048
     Dates: start: 20080308, end: 20080508
  2. PREDNISOLONE [Concomitant]
  3. PARIET (RABEPRAZOLE SODIUM) TABLET [Concomitant]
  4. KLARICID (CLARITHROMYCIN) TABLET [Concomitant]
  5. ONEALFA (ALFACALCIDOL) TABLET [Concomitant]
  6. FOSAMAC (ALENDRONATE SODIUM) TABLET [Concomitant]
  7. BAKUMONDOUTO (HERBAL EXTRACT NOS) POWDER [Concomitant]
  8. MUCOSOLVAN (AMBROXOL) CAPSULE [Concomitant]
  9. MUCODYNE (CARBOCISTEINE) POWDER [Concomitant]
  10. MEDICON (DEXTROMETHORPHAN HYDROBROMIDE) POWDER [Concomitant]
  11. DIHDYDROCODEINE PHOSPHATE (DIHYDROCODEINE PHOSPHATE) POWDER [Concomitant]
  12. NEOPHYLLIN (DIPROPHYLLINE) FORMULATION [Concomitant]
  13. LASIX (FUROSEMIDE) FORMULATION [Concomitant]
  14. FUNGUAR (MICAFUNGIN) INJECTION [Concomitant]
  15. ALBUMIN (ALBUMIN) FORMULATION [Concomitant]

REACTIONS (5)
  - BLOOD PRESSURE DECREASED [None]
  - CONDITION AGGRAVATED [None]
  - DIFFUSE ALVEOLAR DAMAGE [None]
  - INTERSTITIAL LUNG DISEASE [None]
  - RESPIRATORY FAILURE [None]
